FAERS Safety Report 21694437 (Version 1)
Quarter: 2022Q4

REPORT INFORMATION
  Report Type: Spontaneous
  Country: US (occurrence: US)
  Receive Date: 20221207
  Receipt Date: 20221207
  Transmission Date: 20230113
  Serious: Yes (Other)
  Sender: FDA-Public Use
  Company Number: US-NOVOPROD-917072

PATIENT
  Sex: Male

DRUGS (1)
  1. NOVOLIN N [Suspect]
     Active Substance: INSULIN HUMAN
     Indication: Diabetes mellitus
     Dosage: UNK
     Route: 065

REACTIONS (1)
  - Blood glucose increased [Not Recovered/Not Resolved]
